FAERS Safety Report 23470296 (Version 2)
Quarter: 2024Q1

REPORT INFORMATION
  Report Type: Report from Study
  Country: CA (occurrence: CA)
  Receive Date: 20240202
  Receipt Date: 20240216
  Transmission Date: 20240410
  Serious: Yes (Other)
  Sender: FDA-Public Use
  Company Number: CA-BIOGEN-2023BI01235159

PATIENT
  Sex: Female

DRUGS (3)
  1. TYSABRI [Suspect]
     Active Substance: NATALIZUMAB
     Indication: Multiple sclerosis
     Route: 050
     Dates: start: 20210403, end: 20231114
  2. TYSABRI [Suspect]
     Active Substance: NATALIZUMAB
     Route: 050
     Dates: start: 20110511, end: 20171130
  3. TYSABRI [Suspect]
     Active Substance: NATALIZUMAB
     Route: 050
     Dates: start: 20200709

REACTIONS (9)
  - Thyroid disorder [Unknown]
  - Panic disorder [Unknown]
  - Liver disorder [Unknown]
  - Hypertension [Unknown]
  - Incontinence [Unknown]
  - Sleep disorder [Unknown]
  - Multiple sclerosis relapse [Unknown]
  - Prescribed underdose [Recovered/Resolved]
  - Depression [Unknown]
